FAERS Safety Report 17804138 (Version 1)
Quarter: 2020Q2

REPORT INFORMATION
  Report Type: Spontaneous
  Country: BR (occurrence: BR)
  Receive Date: 20200519
  Receipt Date: 20200519
  Transmission Date: 20200714
  Serious: Yes (Other)
  Sender: FDA-Public Use
  Company Number: BR-GLAXOSMITHKLINE-BR2020082844

PATIENT
  Sex: Male

DRUGS (1)
  1. SERETIDE [Suspect]
     Active Substance: FLUTICASONE PROPIONATE\SALMETEROL XINAFOATE
     Indication: ASTHMA
     Dosage: UNK

REACTIONS (7)
  - Respiration abnormal [Unknown]
  - Dyspnoea [Recovered/Resolved with Sequelae]
  - Circumstance or information capable of leading to medication error [Unknown]
  - Drug dependence [Unknown]
  - Asthmatic crisis [Recovered/Resolved with Sequelae]
  - Malaise [Unknown]
  - Product use issue [Unknown]
